FAERS Safety Report 9685787 (Version 1)
Quarter: 2013Q4

REPORT INFORMATION
  Report Type: Spontaneous
  Country: US (occurrence: US)
  Receive Date: 20131113
  Receipt Date: 20131113
  Transmission Date: 20140711
  Serious: Yes (Hospitalization)
  Sender: FDA-Public Use
  Company Number: US-B.I. PHARMACEUTICALS,INC./RIDGEFIELD-2013-BI-35837BP

PATIENT
  Sex: Female
  Weight: 51 kg

DRUGS (10)
  1. COMBIVENT [Suspect]
     Indication: CHRONIC OBSTRUCTIVE PULMONARY DISEASE
     Dosage: STRENGTH: 18 MCG / 103 MCG; DAILY DOSE: 144 MCG/ 824 MCG
     Route: 055
     Dates: start: 2006, end: 2013
  2. ALBUTEROL INHALER [Concomitant]
     Indication: CHRONIC OBSTRUCTIVE PULMONARY DISEASE
     Route: 055
  3. FENTANYL PATCH [Concomitant]
     Indication: BACK PAIN
     Dosage: (PATCH)
     Route: 061
  4. OXTYCONTIN [Concomitant]
     Indication: BACK PAIN
     Dosage: 20 MG
     Route: 048
  5. OXYCODONE [Concomitant]
     Indication: BACK PAIN
     Dosage: 15 MG
     Route: 048
  6. DUONEB NEBULIZER [Concomitant]
     Indication: CHRONIC OBSTRUCTIVE PULMONARY DISEASE
     Route: 055
  7. CALCIUM + D [Concomitant]
     Indication: OSTEOPOROSIS
     Dosage: 600 MG
     Route: 048
  8. DALIRESP [Concomitant]
     Indication: CHRONIC OBSTRUCTIVE PULMONARY DISEASE
     Dosage: 500 MG
     Route: 048
  9. AMLODIPINE [Concomitant]
     Indication: HYPERTENSION
     Dosage: 5 MG
     Route: 048
  10. VITAMIN D 3 [Concomitant]
     Dosage: 2000 U
     Route: 048

REACTIONS (5)
  - Upper limb fracture [Recovered/Resolved]
  - Ankle fracture [Recovered/Resolved]
  - Rib fracture [Recovered/Resolved]
  - Road traffic accident [Recovered/Resolved]
  - Abnormal loss of weight [Not Recovered/Not Resolved]
